FAERS Safety Report 14755706 (Version 2)
Quarter: 2018Q2

REPORT INFORMATION
  Report Type: Report from Study
  Country: CA (occurrence: CA)
  Receive Date: 20180413
  Receipt Date: 20180425
  Transmission Date: 20180711
  Serious: Yes (Other)
  Sender: FDA-Public Use
  Company Number: CA-ROCHE-2107079

PATIENT
  Sex: Female

DRUGS (1)
  1. OCREVUS [Suspect]
     Active Substance: OCRELIZUMAB
     Indication: RELAPSING-REMITTING MULTIPLE SCLEROSIS
     Dosage: ON 20/FEB/2018 AND 06/MAR/2018- BOTH INTIAL DOSES ADMINISTERED?300 MG IV DAY 0 AND DAY 14, 600 MG IV
     Route: 042
     Dates: start: 20180220

REACTIONS (2)
  - Bronchitis [Not Recovered/Not Resolved]
  - Ear infection [Not Recovered/Not Resolved]
